FAERS Safety Report 13622317 (Version 1)
Quarter: 2017Q2

REPORT INFORMATION
  Report Type: Spontaneous
  Country: US (occurrence: US)
  Receive Date: 20170607
  Receipt Date: 20170607
  Transmission Date: 20170830
  Serious: No
  Sender: FDA-Public Use
  Company Number: US-ROCHE-1913087

PATIENT
  Age: 19 Year
  Sex: Male
  Weight: 63.56 kg

DRUGS (2)
  1. KLONOPIN [Suspect]
     Active Substance: CLONAZEPAM
     Indication: ANXIETY
     Dosage: NO
     Route: 048
     Dates: start: 201608, end: 201608
  2. KLONOPIN [Suspect]
     Active Substance: CLONAZEPAM
     Indication: HALLUCINATION
     Dosage: YES
     Route: 048
     Dates: start: 20170325

REACTIONS (2)
  - Fatigue [Not Recovered/Not Resolved]
  - Anxiety [Not Recovered/Not Resolved]

NARRATIVE: CASE EVENT DATE: 20170325
